FAERS Safety Report 23518118 (Version 3)
Quarter: 2024Q1

REPORT INFORMATION
  Report Type: Spontaneous
  Country: US (occurrence: None)
  Receive Date: 20240213
  Receipt Date: 20240327
  Transmission Date: 20240410
  Serious: No
  Sender: FDA-Public Use
  Company Number: 2024A034005

PATIENT
  Age: 66 Year
  Sex: Male

DRUGS (2)
  1. SYMBICORT [Suspect]
     Active Substance: BUDESONIDE\FORMOTEROL FUMARATE DIHYDRATE
     Indication: Chronic obstructive pulmonary disease
     Dosage: 160 UG, 2 PUFFS TWO TIMES A DAY
     Route: 055
  2. BUDESONIDE\FORMOTEROL [Suspect]
     Active Substance: BUDESONIDE\FORMOTEROL
     Dosage: UNKNOWN UNKNOWN
     Route: 055

REACTIONS (6)
  - Tongue discomfort [Not Recovered/Not Resolved]
  - Fatigue [Unknown]
  - Wrong technique in device usage process [Unknown]
  - Device defective [Unknown]
  - Product distribution issue [Unknown]
  - Patient dissatisfaction with treatment [Unknown]

NARRATIVE: CASE EVENT DATE: 20240207
